FAERS Safety Report 10617267 (Version 1)
Quarter: 2014Q4

REPORT INFORMATION
  Report Type: Spontaneous
  Country: US (occurrence: US)
  Receive Date: 20141201
  Receipt Date: 20141201
  Transmission Date: 20150529
  Serious: Yes (Other)
  Sender: FDA-Public Use
  Company Number: US-GLAXOSMITHKLINE-US2014GSK027494

PATIENT
  Sex: Male

DRUGS (1)
  1. ADVAIR HFA [Suspect]
     Active Substance: FLUTICASONE PROPIONATE\SALMETEROL XINAFOATE
     Indication: CHRONIC OBSTRUCTIVE PULMONARY DISEASE
     Dosage: UNK, U

REACTIONS (5)
  - Dacryostenosis acquired [Not Recovered/Not Resolved]
  - Glaucoma [Not Recovered/Not Resolved]
  - Ear disorder [Not Recovered/Not Resolved]
  - Thirst [Unknown]
  - Blindness unilateral [Not Recovered/Not Resolved]
